FAERS Safety Report 20066580 (Version 1)
Quarter: 2021Q4

REPORT INFORMATION
  Report Type: Spontaneous
  Country: JP (occurrence: JP)
  Receive Date: 20211115
  Receipt Date: 20211115
  Transmission Date: 20220303
  Serious: Yes (Hospitalization, Other)
  Sender: FDA-Public Use
  Company Number: JP-VALIDUS PHARMACEUTICALS LLC-JP-VDP-2021-014532

PATIENT
  Age: 47 Year
  Sex: Female

DRUGS (1)
  1. FUROSEMIDE [Suspect]
     Active Substance: FUROSEMIDE
     Indication: Product used for unknown indication
     Dosage: UNKNOWN
     Route: 048

REACTIONS (5)
  - Dehydration [Unknown]
  - Hypotension [Unknown]
  - Physical deconditioning [Unknown]
  - Renal impairment [Recovering/Resolving]
  - Drug abuse [Recovering/Resolving]
